FAERS Safety Report 7980518-5 (Version None)
Quarter: 2011Q4

REPORT INFORMATION
  Report Type: 
  Country: None (occurrence: None)
  Receive Date: 20111214
  Receipt Date: 20111206
  Transmission Date: 20120403
  Serious: Yes (Hospitalization)
  Sender: FDA-Public Use
  Company Number: US-GLAXOSMITHKLINE-B0753164A

PATIENT
  Age: 77 Year
  Sex: Male
  Weight: 108.6 kg

DRUGS (1)
  1. AVANDIA [Suspect]
     Indication: DIABETES MELLITUS
     Dosage: 8MG PER DAY
     Route: 048
     Dates: start: 20020328, end: 20030102

REACTIONS (2)
  - GAIT DISTURBANCE [None]
  - CARDIAC FAILURE CONGESTIVE [None]
